FAERS Safety Report 7106114-X (Version None)
Quarter: 2010Q4

REPORT INFORMATION
  Report Type: 
  Country: None (occurrence: None)
  Receive Date: 20101116
  Receipt Date: 20101111
  Transmission Date: 20110411
  Serious: Yes (Hospitalization, Other)
  Sender: FDA-Public Use
  Company Number: US-ROXANE LABORATORIES, INC.-2010-RO-01490RO

PATIENT
  Age: 21 Year
  Sex: Female

DRUGS (13)
  1. LITHIUM CARBONATE [Suspect]
  2. RISPERIDONE [Suspect]
  3. MIDAZOLAM [Suspect]
     Dosage: 5 MG
     Route: 042
  4. MORPHINE [Suspect]
     Route: 042
  5. DIAZEPAM [Suspect]
     Route: 048
  6. TRAMADOL HCL [Suspect]
  7. QUETIAPINE [Suspect]
  8. ESCITALOPRAM OXALATE [Suspect]
  9. MIRTAZAPINE [Suspect]
  10. FLUOXETINE [Suspect]
  11. SUXAMETHONIUM [Suspect]
     Dosage: 100 MG
     Route: 042
  12. CYPROHEPTADINE HCL [Suspect]
     Dosage: 12 MG
  13. OLANZAPINE [Suspect]

REACTIONS (4)
  - DRUG INEFFECTIVE [None]
  - ILEUS [None]
  - MULTIPLE DRUG OVERDOSE [None]
  - SEROTONIN SYNDROME [None]
